FAERS Safety Report 12156725 (Version 1)
Quarter: 2016Q1

REPORT INFORMATION
  Report Type: Report from Study
  Country: TR (occurrence: TR)
  Receive Date: 20160307
  Receipt Date: 20160307
  Transmission Date: 20160526
  Serious: Yes (Hospitalization, Other)
  Sender: FDA-Public Use
  Company Number: TR-BRISTOL-MYERS SQUIBB COMPANY-BMS-2016-013630

PATIENT
  Age: 64 Year
  Sex: Male
  Weight: 84 kg

DRUGS (8)
  1. NIVOLUMAB [Suspect]
     Active Substance: NIVOLUMAB
     Indication: HAEMATOLOGICAL MALIGNANCY
     Dosage: 252 MG, Q2WK
     Route: 042
     Dates: start: 20160122, end: 20160205
  2. URIKOLIZ [Concomitant]
     Active Substance: ALLOPURINOL
     Indication: ADVERSE EVENT
     Dosage: 150 MG, QD
     Route: 048
     Dates: start: 20160108
  3. EXTERNAL-IBRUTINIB [Suspect]
     Active Substance: IBRUTINIB
     Indication: HAEMATOLOGICAL MALIGNANCY
     Dosage: 420 MG, QD
     Route: 048
     Dates: start: 20160115, end: 20160215
  4. TEOKAP [Concomitant]
     Active Substance: THEOPHYLLINE ANHYDROUS
     Indication: CHRONIC OBSTRUCTIVE PULMONARY DISEASE
     Dosage: 200 MG, BID
     Route: 048
     Dates: start: 20160108
  5. SPIRIVA [Concomitant]
     Active Substance: TIOTROPIUM BROMIDE MONOHYDRATE
     Indication: CHRONIC OBSTRUCTIVE PULMONARY DISEASE
     Dosage: 18 ?G, QD
     Route: 055
     Dates: start: 20160108
  6. LASIX [Concomitant]
     Active Substance: FUROSEMIDE
     Indication: ADVERSE EVENT
     Dosage: 40 MG
     Route: 048
     Dates: start: 20160205
  7. SERETIDE [Concomitant]
     Active Substance: FLUTICASONE FUROATE\SALMETEROL XINAFOATE
     Indication: CHRONIC OBSTRUCTIVE PULMONARY DISEASE
     Dosage: 500 ?G, BID
     Route: 055
     Dates: start: 20160108
  8. PANTOPRAZOLE [Concomitant]
     Active Substance: PANTOPRAZOLE SODIUM
     Indication: ADVERSE EVENT
     Dosage: 40 MG, BID
     Route: 048
     Dates: start: 20160108

REACTIONS (1)
  - Cardiac failure [Recovered/Resolved]

NARRATIVE: CASE EVENT DATE: 20160216
